FAERS Safety Report 7633239-2 (Version None)
Quarter: 2011Q3

REPORT INFORMATION
  Report Type: 
  Country: None (occurrence: None)
  Receive Date: 20110725
  Receipt Date: 20110715
  Transmission Date: 20111222
  Serious: Yes (Other)
  Sender: FDA-Public Use
  Company Number: FR-ABBOTT-11P-056-0730979-00

PATIENT
  Sex: Male
  Weight: 75 kg

DRUGS (2)
  1. HUMIRA [Suspect]
     Indication: SPONDYLITIS
     Route: 058
     Dates: start: 20101201, end: 20110201
  2. NAPROSYN [Concomitant]
     Indication: SPONDYLITIS
     Dosage: 1 GRAM DAILY
     Route: 048

REACTIONS (1)
  - ERECTILE DYSFUNCTION [None]
